FAERS Safety Report 10029638 (Version 1)
Quarter: 2014Q1

REPORT INFORMATION
  Report Type: Spontaneous
  Country: US (occurrence: None)
  Receive Date: 20140320
  Receipt Date: 20140320
  Transmission Date: 20141002
  Serious: Yes (Hospitalization)
  Sender: FDA-Public Use
  Company Number: None

PATIENT
  Age: 78 Year
  Sex: Male
  Weight: 74.84 kg

DRUGS (4)
  1. 5-FU [Suspect]
     Indication: PANCREATIC CARCINOMA METASTATIC
     Route: 042
     Dates: start: 20130131, end: 20140310
  2. OXALIPLATIN [Suspect]
  3. LEUCOVORIN [Suspect]
  4. ABRAXANE [Suspect]

REACTIONS (3)
  - Constipation [None]
  - Fall [None]
  - Lumbar vertebral fracture [None]
